FAERS Safety Report 18889364 (Version 1)
Quarter: 2021Q1

REPORT INFORMATION
  Report Type: Spontaneous
  Country: US (occurrence: US)
  Receive Date: 20210213
  Receipt Date: 20210213
  Transmission Date: 20210420
  Serious: No
  Sender: FDA-Public Use
  Company Number: US-ALKEM LABORATORIES LIMITED-US-ALKEM-2020-01346

PATIENT

DRUGS (2)
  1. METHADONE HYDROCHLORIDE. [Concomitant]
     Active Substance: METHADONE HYDROCHLORIDE
     Indication: PAIN
     Dosage: 5 MG TWICE DAILY AND TITRATED UP TO 15 MG TWICE DAILY
     Route: 065
  2. GABAPENTIN. [Suspect]
     Active Substance: GABAPENTIN
     Indication: ANALGESIC THERAPY
     Dosage: 900 MILLIGRAM, QD
     Route: 065

REACTIONS (2)
  - Drug intolerance [Unknown]
  - Nausea [Unknown]
